FAERS Safety Report 6804778-9 (Version None)
Quarter: 2010Q2

REPORT INFORMATION
  Report Type: 
  Country: None (occurrence: None)
  Receive Date: 20100628
  Receipt Date: 20070524
  Transmission Date: 20101027
  Serious: No
  Sender: FDA-Public Use
  Company Number: US-PFIZER INC-2007042521

PATIENT
  Sex: Male
  Weight: 93.181 kg

DRUGS (6)
  1. GEODON [Suspect]
     Indication: BIPOLAR DISORDER
     Dates: start: 20070301
  2. SPIRIVA [Concomitant]
  3. ADVAIR DISKUS 100/50 [Concomitant]
  4. ADDERALL 10 [Concomitant]
  5. EFFEXOR XR [Concomitant]
  6. PROVIGIL [Concomitant]

REACTIONS (2)
  - FATIGUE [None]
  - HYPOGLYCAEMIA [None]
